FAERS Safety Report 4905466-6 (Version None)
Quarter: 2006Q1

REPORT INFORMATION
  Report Type: 
  Country: None (occurrence: None)
  Receive Date: 20060208
  Receipt Date: 20060202
  Transmission Date: 20060701
  Serious: Yes (Death, Other)
  Sender: FDA-Public Use
  Company Number: ES-BRISTOL-MYERS SQUIBB COMPANY-13270707

PATIENT
  Age: 41 Year
  Sex: Male

DRUGS (4)
  1. SUSTIVA [Suspect]
     Indication: HIV INFECTION
     Route: 048
     Dates: start: 20051222, end: 20051225
  2. TRUVADA [Suspect]
     Indication: HIV INFECTION
     Dosage: 245/200 MG
     Dates: start: 20051222, end: 20051225
  3. CIALIS [Concomitant]
  4. ANTIDEPRESSANT NOS [Concomitant]

REACTIONS (4)
  - ANURIA [None]
  - HEPATITIS FULMINANT [None]
  - HEPATORENAL SYNDROME [None]
  - HYPERKALAEMIA [None]
